FAERS Safety Report 8228560-3 (Version None)
Quarter: 2012Q1

REPORT INFORMATION
  Report Type: 
  Country: None (occurrence: None)
  Receive Date: 20120322
  Receipt Date: 20110412
  Transmission Date: 20120608
  Serious: Yes (Other)
  Sender: FDA-Public Use
  Company Number: US-BRISTOL-MYERS SQUIBB COMPANY-15671415

PATIENT
  Sex: Female

DRUGS (1)
  1. ERBITUX [Suspect]
     Indication: HEAD AND NECK CANCER

REACTIONS (3)
  - DYSPNOEA [None]
  - BLOOD PRESSURE DECREASED [None]
  - FLUSHING [None]
